FAERS Safety Report 9032553 (Version 1)
Quarter: 2013Q1

REPORT INFORMATION
  Report Type: Spontaneous
  Country: US (occurrence: None)
  Receive Date: 20130109
  Receipt Date: 20130109
  Transmission Date: 20140127
  Serious: Yes (Hospitalization, Other)
  Sender: FDA-Public Use
  Company Number: 2012-17343

PATIENT
  Age: 58 Year
  Sex: Male
  Weight: 83 kg

DRUGS (3)
  1. GABAPENTIN [Suspect]
     Indication: NEUROPATHY PERIPHERAL
     Dates: start: 201209, end: 201209
  2. HYDROCODONE BITARTRATE/ACETAMINOPHEN [Suspect]
     Indication: NEUROPATHY PERIPHERAL
     Route: 048
     Dates: start: 201209
  3. LYRICA (PREGABALIN) [Suspect]
     Indication: NEUROPATHY PERIPHERAL

REACTIONS (22)
  - Suicidal ideation [None]
  - Hallucinations, mixed [None]
  - Mood swings [None]
  - Disorientation [None]
  - Abnormal dreams [None]
  - Neck pain [None]
  - Hemiparesis [None]
  - Anorectal discomfort [None]
  - Blister [None]
  - Rash [None]
  - Feeling abnormal [None]
  - Tremor [None]
  - Hospitalisation [None]
  - Anxiety [None]
  - Depression [None]
  - Thinking abnormal [None]
  - Mental impairment [None]
  - Cardiac disorder [None]
  - Crohn^s disease [None]
  - Loss of consciousness [None]
  - Memory impairment [None]
  - Choking [None]
